FAERS Safety Report 19351659 (Version 1)
Quarter: 2021Q2

REPORT INFORMATION
  Report Type: Spontaneous
  Country: US (occurrence: US)
  Receive Date: 20210531
  Receipt Date: 20210531
  Transmission Date: 20210717
  Serious: No
  Sender: FDA-Public Use
  Company Number: US-TARO-2020TAR01551

PATIENT

DRUGS (1)
  1. DESOXIMETASONE SPRAY USP 0.25% [Suspect]
     Active Substance: DESOXIMETASONE
     Indication: URTICARIA
     Dosage: UNK
     Route: 061
     Dates: start: 2018

REACTIONS (1)
  - Application site burn [Unknown]

NARRATIVE: CASE EVENT DATE: 2018
